FAERS Safety Report 9196656 (Version 2)
Quarter: 2013Q2

REPORT INFORMATION
  Report Type: Spontaneous
  Country: US (occurrence: US)
  Receive Date: 20130328
  Receipt Date: 20130408
  Transmission Date: 20140414
  Serious: Yes (Life-Threatening, Other)
  Sender: FDA-Public Use
  Company Number: US-B.I. PHARMACEUTICALS,INC./RIDGEFIELD-2013-BI-08072BP

PATIENT
  Age: 67 Year
  Sex: Male

DRUGS (5)
  1. AGGRENOX [Suspect]
     Indication: TRANSIENT ISCHAEMIC ATTACK
     Route: 048
     Dates: start: 2013
  2. SIMVASTATIN [Concomitant]
     Indication: BLOOD CHOLESTEROL INCREASED
     Dosage: 200 MG
     Route: 048
  3. FOLIC ACID [Concomitant]
     Indication: PLATELET COUNT DECREASED
     Dosage: 1 MG
     Route: 048
  4. NAPROXEN [Concomitant]
     Indication: ARTHRITIS
     Route: 048
  5. NAPROXEN [Concomitant]
     Indication: SCIATICA

REACTIONS (6)
  - Transient ischaemic attack [Recovered/Resolved]
  - Transient ischaemic attack [Recovered/Resolved]
  - Transient ischaemic attack [Recovered/Resolved]
  - Transient ischaemic attack [Recovered/Resolved]
  - Transient ischaemic attack [Recovered/Resolved]
  - Vitamin B12 deficiency [Not Recovered/Not Resolved]
